FAERS Safety Report 9204853 (Version 1)
Quarter: 2013Q2

REPORT INFORMATION
  Report Type: Spontaneous
  Country: SE (occurrence: SE)
  Receive Date: 20130402
  Receipt Date: 20130402
  Transmission Date: 20140414
  Serious: Yes (Other)
  Sender: FDA-Public Use
  Company Number: SE-PFIZER INC-2013101916

PATIENT
  Age: 66 Year
  Sex: Female

DRUGS (3)
  1. PANTOLOC [Suspect]
     Indication: GASTRITIS
     Dosage: 20 MG, DAILY
     Route: 048
  2. PANTOLOC [Suspect]
     Dosage: 1 IN 2 D
     Route: 048
  3. CHLOROMYCETIN [Suspect]
     Indication: EYE INFLAMMATION
     Dosage: 5 MG/ML, UNK

REACTIONS (8)
  - Eye inflammation [Recovered/Resolved with Sequelae]
  - Burning sensation [Recovered/Resolved with Sequelae]
  - Paraesthesia [Recovered/Resolved with Sequelae]
  - Dry skin [Recovered/Resolved with Sequelae]
  - Fatigue [Recovered/Resolved with Sequelae]
  - Swelling face [Recovered/Resolved with Sequelae]
  - Pruritus [Recovered/Resolved with Sequelae]
  - Headache [Recovered/Resolved with Sequelae]
